FAERS Safety Report 6657014-0 (Version None)
Quarter: 2010Q1

REPORT INFORMATION
  Report Type: 
  Country: None (occurrence: None)
  Receive Date: 20100329
  Receipt Date: 20100329
  Transmission Date: 20100710
  Serious: Yes (Other)
  Sender: FDA-Public Use
  Company Number: None

PATIENT
  Age: 52 Year
  Sex: Female
  Weight: 87.9978 kg

DRUGS (1)
  1. ST. JOSEPH ASPRIN 81MG [Suspect]
     Indication: THROMBOSIS
     Dosage: 1 PER DAY PO
     Route: 048

REACTIONS (2)
  - HEADACHE [None]
  - VISUAL IMPAIRMENT [None]
